FAERS Safety Report 12316889 (Version 1)
Quarter: 2016Q2

REPORT INFORMATION
  Report Type: Spontaneous
  Country: US (occurrence: None)
  Receive Date: 20160428
  Receipt Date: 20160428
  Transmission Date: 20160815
  Serious: Yes (Hospitalization)
  Sender: FDA-Public Use
  Company Number: None

PATIENT
  Age: 38 Year
  Sex: Female
  Weight: 165 kg

DRUGS (1)
  1. CEPHALEXIN. [Suspect]
     Active Substance: CEPHALEXIN
     Indication: WOUND
     Route: 048

REACTIONS (4)
  - Angioedema [None]
  - Hypersensitivity [None]
  - Joint swelling [None]
  - Rash [None]

NARRATIVE: CASE EVENT DATE: 20160409
